FAERS Safety Report 15889903 (Version 5)
Quarter: 2021Q2

REPORT INFORMATION
  Report Type: Spontaneous
  Country: JP (occurrence: JP)
  Receive Date: 20190130
  Receipt Date: 20210414
  Transmission Date: 20210716
  Serious: Yes (Death)
  Sender: FDA-Public Use
  Company Number: JP-009507513-1901JPN002305J

PATIENT
  Age: 71 Year
  Sex: Male
  Weight: 57 kg

DRUGS (8)
  1. CALONAL [Concomitant]
     Active Substance: ACETAMINOPHEN
     Dosage: 200 MILLIGRAM
     Route: 065
  2. KEYTRUDA [Suspect]
     Active Substance: PEMBROLIZUMAB
     Indication: LUNG ADENOCARCINOMA STAGE IV
     Dosage: 200 MILLIGRAM, Q3W
     Route: 041
     Dates: start: 20180827, end: 20181030
  3. AZOSEMIDE [Concomitant]
     Active Substance: AZOSEMIDE
     Dosage: 15 MILLIGRAM, QD, AFTER BREAKFAST
     Route: 048
  4. AMIODARONE HYDROCHLORIDE. [Concomitant]
     Active Substance: AMIODARONE HYDROCHLORIDE
     Dosage: 50 MILLIGRAM, QD, AFTER BREAKFAST
     Route: 048
  5. JANUVIA [Concomitant]
     Active Substance: SITAGLIPTIN PHOSPHATE
     Dosage: 25 MILLIGRAM, BID, AFTER BREAKFAST AND DINNER
     Route: 048
  6. ENALAPRIL MALEATE. [Concomitant]
     Active Substance: ENALAPRIL MALEATE
     Dosage: 5 MILLIGRAM, QD, AFTER BREAKFAST
     Route: 048
  7. SAMSCA [Concomitant]
     Active Substance: TOLVAPTAN
     Dosage: 7.5 MILLIGRAM, QD, AFTER BREAKFAST
     Route: 048
  8. SUGLAT [Concomitant]
     Active Substance: IPRAGLIFLOZIN L-PROLINE
     Dosage: 25 MILLIGRAM, QD, AFTER BREAKFAST
     Route: 048

REACTIONS (1)
  - Interstitial lung disease [Fatal]

NARRATIVE: CASE EVENT DATE: 20181031
